FAERS Safety Report 11788785 (Version 1)
Quarter: 2015Q4

REPORT INFORMATION
  Report Type: Spontaneous
  Country: US (occurrence: None)
  Receive Date: 20151130
  Receipt Date: 20151130
  Transmission Date: 20160305
  Serious: No
  Sender: FDA-Public Use
  Company Number: None

PATIENT
  Age: 61 Year
  Sex: Male
  Weight: 102.06 kg

DRUGS (1)
  1. CLINDAMYCIN [Suspect]
     Active Substance: CLINDAMYCIN\CLINDAMYCIN PHOSPHATE
     Indication: INFLAMMATION
     Dosage: 1 CAPSULE  THREE TIMES DAILY TAKEN BY MOUTH
     Route: 048
     Dates: start: 20151123, end: 20151126

REACTIONS (9)
  - Nausea [None]
  - Diarrhoea [None]
  - Chest pain [None]
  - Oesophageal pain [None]
  - Asthenia [None]
  - Headache [None]
  - Hypophagia [None]
  - Dizziness [None]
  - Glossodynia [None]

NARRATIVE: CASE EVENT DATE: 20151126
